FAERS Safety Report 16726613 (Version 1)
Quarter: 2019Q3

REPORT INFORMATION
  Report Type: Spontaneous
  Country: US (occurrence: US)
  Receive Date: 20190821
  Receipt Date: 20190821
  Transmission Date: 20191005
  Serious: No
  Sender: FDA-Public Use
  Company Number: US-BAUSCH-BL-2019-022541

PATIENT

DRUGS (2)
  1. ISTALOL [Suspect]
     Active Substance: TIMOLOL MALEATE
     Indication: EXFOLIATION GLAUCOMA
     Route: 065
  2. ISTALOL [Suspect]
     Active Substance: TIMOLOL MALEATE
     Indication: OCULAR HYPERTENSION

REACTIONS (4)
  - Blood pressure abnormal [Unknown]
  - Swelling of eyelid [Unknown]
  - Eye irritation [Unknown]
  - Erythema [Unknown]
